FAERS Safety Report 4345991-2 (Version None)
Quarter: 2004Q2

REPORT INFORMATION
  Report Type: 
  Country: None (occurrence: None)
  Receive Date: 20040423
  Receipt Date: 20040415
  Transmission Date: 20050107
  Serious: Yes (Death)
  Sender: FDA-Public Use
  Company Number: 04-04-0566

PATIENT
  Age: 82 Year
  Sex: Female

DRUGS (1)
  1. CLOZAPINE [Suspect]
     Dosage: 25-37.5MG QD ORAL
     Route: 048
     Dates: start: 20030801, end: 20040301

REACTIONS (1)
  - MYOCARDIAL INFARCTION [None]
